FAERS Safety Report 13066905 (Version 1)
Quarter: 2016Q4

REPORT INFORMATION
  Report Type: Report from Study
  Country: DE (occurrence: DE)
  Receive Date: 20161227
  Receipt Date: 20161227
  Transmission Date: 20170207
  Serious: Yes (Death, Hospitalization, Other)
  Sender: FDA-Public Use
  Company Number: DE-BIOGEN-2012BI047646

PATIENT
  Age: 60 Year
  Sex: Male

DRUGS (4)
  1. ASPIRIN. [Concomitant]
     Active Substance: ASPIRIN
     Route: 065
  2. VITAMIN B12 [Concomitant]
     Active Substance: CYANOCOBALAMIN
     Indication: VITAMIN B12 DEFICIENCY
     Route: 065
     Dates: start: 201208, end: 201208
  3. FAMPYRA [Suspect]
     Active Substance: DALFAMPRIDINE
     Indication: MULTIPLE SCLEROSIS
     Route: 048
     Dates: start: 20120803, end: 20120819
  4. RAMIPRIL. [Concomitant]
     Active Substance: RAMIPRIL
     Route: 065
     Dates: start: 2007, end: 20120819

REACTIONS (7)
  - Pneumonia [Fatal]
  - Vomiting [Fatal]
  - Haemorrhagic erosive gastritis [Fatal]
  - Sepsis [Fatal]
  - Duodenitis [Fatal]
  - Nausea [Fatal]
  - Erosive duodenitis [Fatal]

NARRATIVE: CASE EVENT DATE: 20120817
